FAERS Safety Report 7333408-5 (Version None)
Quarter: 2011Q1

REPORT INFORMATION
  Report Type: 
  Country: None (occurrence: None)
  Receive Date: 20110304
  Receipt Date: 20110222
  Transmission Date: 20110831
  Serious: Yes (Other)
  Sender: FDA-Public Use
  Company Number: IL-ABBOTT-11P-082-0708229-00

PATIENT
  Age: 29 Year
  Sex: Male

DRUGS (4)
  1. HUMIRA [Suspect]
  2. HUMIRA [Suspect]
  3. HUMIRA [Suspect]
     Indication: CROHN'S DISEASE
  4. HUMIRA [Suspect]

REACTIONS (7)
  - INJECTION SITE REACTION [None]
  - BLISTER [None]
  - DIARRHOEA HAEMORRHAGIC [None]
  - INJECTION SITE SWELLING [None]
  - INTESTINAL RESECTION [None]
  - INJECTION SITE ERYTHEMA [None]
  - DRUG INEFFECTIVE [None]
